FAERS Safety Report 8090343-5 (Version None)
Quarter: 2012Q1

REPORT INFORMATION
  Report Type: 
  Country: None (occurrence: None)
  Receive Date: 20120129
  Receipt Date: 20111119
  Transmission Date: 20120608
  Serious: No
  Sender: FDA-Public Use
  Company Number: US-ABBOTT-11P-163-0875962-00

PATIENT
  Age: 9 Year
  Sex: Female

DRUGS (3)
  1. MELOXICAM [Concomitant]
     Indication: PRODUCT USED FOR UNKNOWN INDICATION
     Dosage: 7.5 MG - 1/2 TABLET DAILY
  2. HUMIRA [Suspect]
     Indication: JUVENILE ARTHRITIS
     Dates: start: 20110901
  3. FLOVENT [Concomitant]
     Indication: PRODUCT USED FOR UNKNOWN INDICATION
     Dosage: DAILY

REACTIONS (1)
  - MUSCLE TWITCHING [None]
